FAERS Safety Report 13698702 (Version 1)
Quarter: 2017Q2

REPORT INFORMATION
  Report Type: Spontaneous
  Country: US (occurrence: US)
  Receive Date: 20170627
  Receipt Date: 20170627
  Transmission Date: 20170830
  Serious: Yes (Hospitalization, Disabling)
  Sender: FDA-Public Use
  Company Number: None

PATIENT
  Age: 85 Year
  Sex: Male
  Weight: 59.4 kg

DRUGS (17)
  1. GLIPIZIDE. [Concomitant]
     Active Substance: GLIPIZIDE
  2. PRIMIDONE. [Concomitant]
     Active Substance: PRIMIDONE
  3. SUPER B COMPLEX [Concomitant]
     Active Substance: CYANOCOBALAMIN\DEXPANTHENOL\NIACINAMIDE\PYRIDOXINE HYDROCHLORIDE\RIBOFLAVIN 5^-PHOSPHATE SODIUM\THIAMINE HYDROCHLORIDE\VITAMIN B COMPLEX
  4. TURMERIC [Concomitant]
     Active Substance: HERBALS\TURMERIC
  5. NAMENDA XR [Concomitant]
     Active Substance: MEMANTINE HYDROCHLORIDE
  6. VITAMIN C [Concomitant]
     Active Substance: ASCORBIC ACID
  7. GLUCOSAMINE/CHONDROITIN /08437701/ [Concomitant]
     Active Substance: CHONDROITIN SULFATE (BOVINE)\GLUCOSAMINE SULFATE
  8. PROSTATA [Concomitant]
  9. METFORMIN [Concomitant]
     Active Substance: METFORMIN HYDROCHLORIDE
  10. DOXOLOMIDE DROPS [Concomitant]
  11. LATANOPROST. [Concomitant]
     Active Substance: LATANOPROST
  12. NATTOKINASE [Concomitant]
     Active Substance: NATTOKINASE
  13. ELIQUIS [Suspect]
     Active Substance: APIXABAN
     Indication: PRODUCT USED FOR UNKNOWN INDICATION
     Dosage: ?          QUANTITY:90 CAPSULE(S);?
     Route: 048
  14. PANTOPRAZONE [Concomitant]
  15. AMITRIPTYLN [Concomitant]
  16. FEROUS SULFATE [Concomitant]
  17. ORESER/VUSUIB AREDS [Concomitant]

REACTIONS (4)
  - Injection site pain [None]
  - Nerve injury [None]
  - Blindness unilateral [None]
  - Visual impairment [None]

NARRATIVE: CASE EVENT DATE: 20170106
